FAERS Safety Report 20457912 (Version 2)
Quarter: 2022Q1

REPORT INFORMATION
  Report Type: Spontaneous
  Country: US (occurrence: US)
  Receive Date: 20220210
  Receipt Date: 20220217
  Transmission Date: 20220423
  Serious: Yes (Other)
  Sender: FDA-Public Use
  Company Number: US-MLMSERVICE-20220124-3327901-1

PATIENT
  Age: 74 Year
  Sex: Female

DRUGS (5)
  1. PREDNISONE [Suspect]
     Active Substance: PREDNISONE
     Indication: Myasthenia gravis
     Dosage: 11 MILLIGRAM, ONCE A DAY
     Route: 065
  2. TOZINAMERAN [Suspect]
     Active Substance: TOZINAMERAN
     Indication: COVID-19 immunisation
     Dosage: 1 DOSAGE FORM, 21 DAY
  3. ECULIZUMAB [Suspect]
     Active Substance: ECULIZUMAB
     Indication: Myasthenia gravis
     Dosage: UNK UNK, EVERY WEEK
     Route: 065
  4. ECULIZUMAB [Suspect]
     Active Substance: ECULIZUMAB
     Dosage: BIWEEKLY
     Route: 065
  5. MYCOPHENOLATE SODIUM [Suspect]
     Active Substance: MYCOPHENOLATE SODIUM
     Indication: Myasthenia gravis
     Dosage: 1440 MILLIGRAM, ONCE A DAY
     Route: 065

REACTIONS (4)
  - Decreased immune responsiveness [Recovered/Resolved]
  - Lymphopenia [Unknown]
  - Vaccine induced antibody absent [Recovered/Resolved]
  - Vaccination failure [Recovered/Resolved]
